FAERS Safety Report 4330930-0 (Version None)
Quarter: 2004Q1

REPORT INFORMATION
  Report Type: 
  Country: None (occurrence: None)
  Receive Date: 20040329
  Receipt Date: 19960518
  Transmission Date: 20041129
  Serious: Yes (Death)
  Sender: FDA-Public Use
  Company Number: WAES 0403USA02017

PATIENT
  Age: 2 Day
  Sex: Male

DRUGS (1)
  1. INDOCIN [Suspect]
     Indication: PATENT DUCTUS ARTERIOSUS
     Dosage: 230 MICROGM/DAILY, IV
     Route: 042
     Dates: start: 19951210, end: 19951220

REACTIONS (2)
  - DISEASE RECURRENCE [None]
  - PULMONARY HAEMORRHAGE [None]
